FAERS Safety Report 21405743 (Version 1)
Quarter: 2022Q4

REPORT INFORMATION
  Report Type: Spontaneous
  Country: AR (occurrence: AR)
  Receive Date: 20221004
  Receipt Date: 20221004
  Transmission Date: 20230113
  Serious: Yes (Other)
  Sender: FDA-Public Use
  Company Number: AR-TEVA-2022-AR-2078495

PATIENT
  Age: 47 Year
  Sex: Male

DRUGS (2)
  1. ESCITALOPRAM OXALATE [Interacting]
     Active Substance: ESCITALOPRAM OXALATE
     Indication: Product used for unknown indication
     Route: 048
     Dates: start: 20220126, end: 20220531
  2. METFORMIN [Interacting]
     Active Substance: METFORMIN HYDROCHLORIDE
     Indication: Product used for unknown indication
     Dosage: 2 GRAM DAILY; ONE DOSE AFTER LUNCH AND ANOTHER AFTER
     Route: 065

REACTIONS (3)
  - Blood glucagon increased [Recovered/Resolved]
  - Drug interaction [Unknown]
  - Drug effect less than expected [Unknown]

NARRATIVE: CASE EVENT DATE: 20220126
